FAERS Safety Report 20099347 (Version 1)
Quarter: 2021Q4

REPORT INFORMATION
  Report Type: Spontaneous
  Country: GB (occurrence: GB)
  Receive Date: 20211122
  Receipt Date: 20211122
  Transmission Date: 20220304
  Serious: Yes (Other)
  Sender: FDA-Public Use
  Company Number: GB-BAXTER-2021BAX036133

PATIENT

DRUGS (4)
  1. CYCLOPHOSPHAMIDE [Suspect]
     Active Substance: CYCLOPHOSPHAMIDE
     Indication: Product used for unknown indication
     Dosage: TOTAL DOSE ADMINISTERED 1000 MG
     Route: 065
     Dates: start: 20211111, end: 20211111
  2. CYCLOPHOSPHAMIDE [Suspect]
     Active Substance: CYCLOPHOSPHAMIDE
     Dosage: TOTAL DOSE ADMINISTERED 1000 MG
     Route: 065
     Dates: start: 20211111, end: 20211111
  3. SODIUM CHLORIDE [Suspect]
     Active Substance: SODIUM CHLORIDE
     Indication: Medication dilution
     Dosage: TOTAL DILUTION USED 50 ML.
     Route: 065
     Dates: start: 20211111, end: 20211111
  4. SODIUM CHLORIDE [Suspect]
     Active Substance: SODIUM CHLORIDE
     Dosage: TOTAL DILUTION USED 50 ML.
     Route: 065
     Dates: start: 20211111, end: 20211111

REACTIONS (1)
  - Chills [Unknown]

NARRATIVE: CASE EVENT DATE: 20211111
